FAERS Safety Report 9461194 (Version 2)
Quarter: 2013Q3

REPORT INFORMATION
  Report Type: Spontaneous
  Country: US (occurrence: US)
  Receive Date: 20130816
  Receipt Date: 20130821
  Transmission Date: 20140515
  Serious: No
  Sender: FDA-Public Use
  Company Number: US-009507513-1308USA006394

PATIENT
  Sex: Female

DRUGS (1)
  1. NEXPLANON [Suspect]
     Indication: CONTRACEPTION
     Dosage: UNK
     Dates: start: 201201, end: 201202

REACTIONS (2)
  - Medical device complication [Recovered/Resolved]
  - Device kink [Recovered/Resolved]
